FAERS Safety Report 10297268 (Version 1)
Quarter: 2014Q3

REPORT INFORMATION
  Report Type: Spontaneous
  Country: AT (occurrence: AT)
  Receive Date: 20140711
  Receipt Date: 20140711
  Transmission Date: 20150326
  Serious: Yes (Other)
  Sender: FDA-Public Use
  Company Number: AT-BEH-2014043712

PATIENT
  Age: 51 Year
  Sex: Male
  Weight: 75 kg

DRUGS (25)
  1. PRIVIGEN [Suspect]
     Active Substance: HUMAN IMMUNOGLOBULIN G
  2. LYRICA 25 MG [Concomitant]
  3. PRIVIGEN [Suspect]
     Active Substance: HUMAN IMMUNOGLOBULIN G
  4. AMARYL 4 MG [Concomitant]
  5. PRIVIGEN [Suspect]
     Active Substance: HUMAN IMMUNOGLOBULIN G
  6. PRIVIGEN [Suspect]
     Active Substance: HUMAN IMMUNOGLOBULIN G
  7. TRAMAL 100 MG [Concomitant]
  8. LYRICA 25 MG [Concomitant]
     Dosage: 1 DF IN THE MORNING; 2 DF IN THE EVENING
  9. LOVENOX 60 [Concomitant]
  10. PRIVIGEN [Suspect]
     Active Substance: HUMAN IMMUNOGLOBULIN G
     Dosage: MAX. INFUSION RATE: 13 G/HOUR
     Dates: start: 20140417
  11. CORTISONE [Concomitant]
     Active Substance: CORTISONE\HYDROCORTISONE
  12. INSULIN [Concomitant]
     Active Substance: INSULIN NOS
  13. PRIVIGEN [Suspect]
     Active Substance: HUMAN IMMUNOGLOBULIN G
  14. SORTIS 10 MG [Concomitant]
  15. ALPHA LIPOIC ACID [Concomitant]
     Active Substance: .ALPHA.-LIPOIC ACID
  16. ULTRABASE [Concomitant]
  17. PRIVIGEN [Suspect]
     Active Substance: HUMAN IMMUNOGLOBULIN G
  18. URBASON [Concomitant]
     Active Substance: METHYLPREDNISOLONE
  19. PRIVIGEN [Suspect]
     Active Substance: HUMAN IMMUNOGLOBULIN G
     Indication: CHRONIC INFLAMMATORY DEMYELINATING POLYRADICULONEUROPATHY
  20. AMARYL 4 MG [Concomitant]
  21. NOVOMIX 30 [Concomitant]
     Active Substance: INSULIN ASPART
  22. INSULIN INSULATARD [Concomitant]
  23. PRIVIGEN [Suspect]
     Active Substance: HUMAN IMMUNOGLOBULIN G
  24. ALL OTHER THERAPEUTIC PRODUCTS [Concomitant]
     Active Substance: UNSPECIFIED INGREDIENT
  25. PANTALOC 40 MG [Concomitant]

REACTIONS (2)
  - Haemolytic anaemia [Recovered/Resolved]
  - Drug ineffective [Unknown]

NARRATIVE: CASE EVENT DATE: 20140419
